FAERS Safety Report 5096685-X (Version None)
Quarter: 2006Q3

REPORT INFORMATION
  Report Type: 
  Country: None (occurrence: None)
  Receive Date: 20060831
  Receipt Date: 20060821
  Transmission Date: 20061208
  Serious: No
  Sender: FDA-Public Use
  Company Number: BR-2006-024724

PATIENT
  Age: 33 Year
  Sex: Female

DRUGS (1)
  1. MIRENA [Suspect]
     Dosage: 20 UG/DAY, CONT, INTRA-UTERINE
     Route: 015
     Dates: start: 20040501

REACTIONS (3)
  - AMENORRHOEA [None]
  - PAPILLOMA VIRAL INFECTION [None]
  - PELVIC PAIN [None]
